FAERS Safety Report 12342538 (Version 2)
Quarter: 2016Q3

REPORT INFORMATION
  Report Type: Spontaneous
  Country: US (occurrence: US)
  Receive Date: 20160506
  Receipt Date: 20160822
  Transmission Date: 20161109
  Serious: Yes (Other)
  Sender: FDA-Public Use
  Company Number: US-AMGEN-USASP2016056048

PATIENT
  Age: 79 Year

DRUGS (17)
  1. WARFARIN [Concomitant]
     Active Substance: WARFARIN
  2. SPIRIVA [Concomitant]
     Active Substance: TIOTROPIUM BROMIDE MONOHYDRATE
  3. PLAVIX [Concomitant]
     Active Substance: CLOPIDOGREL BISULFATE
  4. AMLODIPINE [Concomitant]
     Active Substance: AMLODIPINE BESYLATE
  5. PREVACID [Concomitant]
     Active Substance: LANSOPRAZOLE
  6. INSULIN [Concomitant]
     Active Substance: INSULIN NOS
  7. VITAMIN D [Concomitant]
     Active Substance: CHOLECALCIFEROL
  8. JANUVIA [Concomitant]
     Active Substance: SITAGLIPTIN PHOSPHATE
  9. LATANOPROST. [Concomitant]
     Active Substance: LATANOPROST
  10. LEVETIRACETAM. [Concomitant]
     Active Substance: LEVETIRACETAM
  11. REPATHA [Suspect]
     Active Substance: EVOLOCUMAB
     Indication: PRODUCT USED FOR UNKNOWN INDICATION
     Dosage: 140 MG, UNK
     Route: 065
  12. SYMBICORT [Concomitant]
     Active Substance: BUDESONIDE\FORMOTEROL FUMARATE DIHYDRATE
  13. LOSARTAN. [Concomitant]
     Active Substance: LOSARTAN
  14. LANTUS [Concomitant]
     Active Substance: INSULIN GLARGINE
  15. CRESTOR [Concomitant]
     Active Substance: ROSUVASTATIN CALCIUM
  16. CIALIS [Concomitant]
     Active Substance: TADALAFIL
  17. IRON [Concomitant]
     Active Substance: IRON

REACTIONS (2)
  - Chest discomfort [Unknown]
  - Catheter placement [Unknown]
